FAERS Safety Report 6410325-6 (Version None)
Quarter: 2009Q4

REPORT INFORMATION
  Report Type: 
  Country: None (occurrence: None)
  Receive Date: 20091022
  Receipt Date: 20091012
  Transmission Date: 20100525
  Serious: Yes (Hospitalization, Other)
  Sender: FDA-Public Use
  Company Number: US-ROCHE-644040

PATIENT
  Sex: Male
  Weight: 72.6 kg

DRUGS (6)
  1. ACCUTANE [Suspect]
     Route: 048
     Dates: start: 20050428, end: 20050630
  2. ACCUTANE [Suspect]
     Route: 048
     Dates: start: 20050829
  3. ACCUTANE [Suspect]
     Route: 048
     Dates: start: 20050926
  4. ACCUTANE [Suspect]
     Route: 048
     Dates: start: 20051027
  5. ACCUTANE [Suspect]
     Dosage: DOSING AMOUNT ALERED BETWEEN 40 MG DAILY TO 40 MG TWICE DAILY
     Route: 048
     Dates: start: 20051222, end: 20060705
  6. CLARAVIS [Suspect]
     Route: 048
     Dates: start: 20050428, end: 20050528

REACTIONS (11)
  - APHTHOUS STOMATITIS [None]
  - BLOOD CHOLESTEROL INCREASED [None]
  - BLOOD TRIGLYCERIDES INCREASED [None]
  - CHAPPED LIPS [None]
  - COLITIS ULCERATIVE [None]
  - CROHN'S DISEASE [None]
  - DEEP VEIN THROMBOSIS [None]
  - DRY SKIN [None]
  - INFLAMMATORY BOWEL DISEASE [None]
  - INTESTINAL HAEMORRHAGE [None]
  - PLATELET COUNT INCREASED [None]
